FAERS Safety Report 4451550-3 (Version None)
Quarter: 2004Q3

REPORT INFORMATION
  Report Type: 
  Country: None (occurrence: None)
  Receive Date: 20040915
  Receipt Date: 20040907
  Transmission Date: 20050211
  Serious: Yes (Other)
  Sender: FDA-Public Use
  Company Number: CIP04001481

PATIENT
  Sex: Male

DRUGS (1)
  1. MACROBID [Suspect]
     Dosage: ORAL
     Route: 048
     Dates: start: 20040101

REACTIONS (6)
  - CHILLS [None]
  - DERMATITIS EXFOLIATIVE [None]
  - HODGKIN'S DISEASE [None]
  - NIGHT SWEATS [None]
  - PYREXIA [None]
  - TREMOR [None]
